FAERS Safety Report 21979427 (Version 1)
Quarter: 2023Q1

REPORT INFORMATION
  Report Type: Spontaneous
  Country: CA (occurrence: CA)
  Receive Date: 20230210
  Receipt Date: 20230210
  Transmission Date: 20230417
  Serious: Yes (Hospitalization)
  Sender: FDA-Public Use
  Company Number: CA-FreseniusKabi-FK202301624

PATIENT
  Age: 12 Year
  Sex: Male
  Weight: 30.6 kg

DRUGS (1)
  1. PIPERACILLIN SODIUM\TAZOBACTAM SODIUM [Suspect]
     Active Substance: PIPERACILLIN SODIUM\TAZOBACTAM SODIUM
     Indication: Product used for unknown indication
     Route: 042

REACTIONS (7)
  - Strawberry tongue [Recovered/Resolved]
  - Haemoglobin decreased [Recovered/Resolved]
  - Alanine aminotransferase increased [Recovered/Resolved]
  - Skin reaction [Recovered/Resolved]
  - Rash [Recovered/Resolved]
  - Vancomycin infusion reaction [Recovered/Resolved]
  - Pyrexia [Recovered/Resolved]
